FAERS Safety Report 7607196-9 (Version None)
Quarter: 2011Q3

REPORT INFORMATION
  Report Type: 
  Country: None (occurrence: None)
  Receive Date: 20110713
  Receipt Date: 20110705
  Transmission Date: 20111222
  Serious: Yes (Hospitalization, Other)
  Sender: FDA-Public Use
  Company Number: JP-ABBOTT-11P-087-0733163-00

PATIENT
  Sex: Female
  Weight: 64.4 kg

DRUGS (10)
  1. PREDNISOLONE [Concomitant]
     Indication: RHEUMATOID ARTHRITIS
     Route: 048
     Dates: start: 20101102, end: 20110110
  2. PREDNISOLONE [Concomitant]
     Dates: start: 20110111, end: 20110207
  3. PREDNISOLONE [Concomitant]
     Dates: start: 20110419
  4. METHOTREXATE [Concomitant]
     Indication: RHEUMATOID ARTHRITIS
     Dates: start: 20091007
  5. HUMIRA [Suspect]
     Dates: start: 20110322
  6. CELECOXIB [Concomitant]
     Indication: RHEUMATOID ARTHRITIS
     Dates: start: 20090915
  7. SODIUM RISEDRONATE HYDRATE [Concomitant]
     Indication: PRODUCT USED FOR UNKNOWN INDICATION
     Route: 048
     Dates: start: 20101228
  8. BUCILLAMINE [Concomitant]
     Indication: RHEUMATOID ARTHRITIS
     Dates: start: 20091007
  9. PREDNISOLONE [Concomitant]
     Dates: start: 20110208, end: 20110418
  10. HUMIRA [Suspect]
     Indication: RHEUMATOID ARTHRITIS
     Dates: start: 20091007, end: 20110221

REACTIONS (4)
  - FRACTURE [None]
  - EXOSTOSIS [None]
  - FALL [None]
  - ARTHRALGIA [None]
